FAERS Safety Report 4838573-7 (Version None)
Quarter: 2005Q4

REPORT INFORMATION
  Report Type: 
  Country: None (occurrence: None)
  Receive Date: 20051123
  Receipt Date: 20051123
  Transmission Date: 20060501
  Serious: No
  Sender: FDA-Public Use
  Company Number: None

PATIENT
  Age: 62 Year
  Sex: Male
  Weight: 112 kg

DRUGS (4)
  1. SARGRAMOSTIM [Suspect]
     Indication: CHEMOTHERAPY
     Dosage: 500MCG,ONCE,SUBCUTAN
     Route: 058
  2. SARGRAMOSTIM [Suspect]
     Indication: WHITE BLOOD CELL DISORDER
     Dosage: 500MCG,ONCE,SUBCUTAN
     Route: 058
  3. ONDANSETRON HCL [Concomitant]
  4. DARBEPOETINE ALFA (MCG) [Concomitant]

REACTIONS (5)
  - CHILLS [None]
  - HYPOTENSION [None]
  - NAUSEA [None]
  - TACHYCARDIA [None]
  - VOMITING [None]
